FAERS Safety Report 6906249-8 (Version None)
Quarter: 2010Q3

REPORT INFORMATION
  Report Type: 
  Country: None (occurrence: None)
  Receive Date: 20100804
  Receipt Date: 20100723
  Transmission Date: 20110219
  Serious: Yes (Disabling)
  Sender: FDA-Public Use
  Company Number: -SANOFI-AVENTIS-2010SA026366

PATIENT
  Age: 70 Year
  Sex: Male

DRUGS (9)
  1. ERYTHROMYCIN [Suspect]
     Indication: CELLULITIS
     Route: 048
  2. ERYTHROMYCIN [Suspect]
     Indication: CHALAZION
     Route: 048
  3. METRONIDAZOLE [Interacting]
     Indication: CHALAZION
     Route: 048
  4. ACETYLSALICYLIC ACID SRT [Interacting]
     Indication: CHEST PAIN
  5. CIPROFLOXACIN [Interacting]
     Indication: CHALAZION
     Route: 048
  6. CLOPIDOGREL BISULFATE [Interacting]
     Indication: CHEST PAIN
  7. TEICOPLANIN SODIUM [Interacting]
     Indication: CHALAZION
     Route: 030
  8. WARFARIN SODIUM [Interacting]
     Indication: PULMONARY EMBOLISM
  9. MEROPENEM [Interacting]
     Indication: CHALAZION
     Route: 042

REACTIONS (4)
  - DRUG INTERACTION [None]
  - HYPHAEMA [None]
  - INTERNATIONAL NORMALISED RATIO INCREASED [None]
  - INTRAOCULAR PRESSURE INCREASED [None]
